FAERS Safety Report 18480282 (Version 1)
Quarter: 2020Q4

REPORT INFORMATION
  Report Type: Spontaneous
  Country: NO (occurrence: NO)
  Receive Date: 20201109
  Receipt Date: 20201109
  Transmission Date: 20210114
  Serious: Yes (Hospitalization)
  Sender: FDA-Public Use
  Company Number: NO-SAMSUNG BIOEPIS-SB-2020-33605

PATIENT
  Age: 57 Year
  Sex: Female

DRUGS (5)
  1. INFLIXIMAB [Suspect]
     Active Substance: INFLIXIMAB
     Indication: CROHN^S DISEASE
     Dosage: DOSE 400 MG. THE LAST INFUSION WAS NO. 29.
     Route: 065
     Dates: start: 20160617, end: 20200729
  2. METHOTREXATE (METHOTREXATE SODIUM) [Concomitant]
     Active Substance: METHOTREXATE SODIUM
     Indication: CROHN^S DISEASE
     Dosage: WEDNESDAY
     Route: 048
     Dates: start: 20160617, end: 20200729
  3. FOLSYRE ORIFARM [Concomitant]
     Indication: PRODUCT USED FOR UNKNOWN INDICATION
     Dosage: 1 MG SIX OR SEVEN DAYS DURING METHOTREXATE TREATMENT
     Route: 048
  4. LEVAXIN [Concomitant]
     Active Substance: LEVOTHYROXINE SODIUM
     Indication: PRODUCT USED FOR UNKNOWN INDICATION
     Dosage: UNKNOWN
     Route: 065
  5. NYCOPLUS D3-VITAMIN [Concomitant]
     Indication: VITAMIN D DEFICIENCY
     Route: 048

REACTIONS (1)
  - Meningitis aseptic [Recovering/Resolving]

NARRATIVE: CASE EVENT DATE: 20200730
